FAERS Safety Report 8544485-8 (Version None)
Quarter: 2012Q3

REPORT INFORMATION
  Report Type: 
  Country: None (occurrence: None)
  Receive Date: 20120727
  Receipt Date: 20120725
  Transmission Date: 20120928
  Serious: Yes (Death)
  Sender: FDA-Public Use
  Company Number: PHHY2012KR063705

PATIENT
  Sex: Male

DRUGS (1)
  1. TELBIVUDINE [Suspect]
     Indication: HEPATITIS B
     Dosage: 600 MG, PER DAY
     Route: 048
     Dates: start: 20110224

REACTIONS (2)
  - HEPATIC NEOPLASM MALIGNANT [None]
  - CONDITION AGGRAVATED [None]
